FAERS Safety Report 6005542-3 (Version None)
Quarter: 2008Q4

REPORT INFORMATION
  Report Type: 
  Country: None (occurrence: None)
  Receive Date: 20081216
  Receipt Date: 20081216
  Transmission Date: 20090506
  Serious: Yes (Hospitalization)
  Sender: FDA-Public Use
  Company Number: None

PATIENT
  Age: 26 Year
  Sex: Female
  Weight: 46.7205 kg

DRUGS (2)
  1. AVELOX [Suspect]
     Indication: SINUSITIS
     Dosage: 400 MG EVERY NIGHT PO 400 MG -1/2 @ 8:30; 10:30- EVERY NIGHT PO
     Route: 048
     Dates: start: 20081117, end: 20081212
  2. . [Concomitant]

REACTIONS (3)
  - ARTHRALGIA [None]
  - DRUG HYPERSENSITIVITY [None]
  - HEART RATE IRREGULAR [None]
